FAERS Safety Report 25213874 (Version 1)
Quarter: 2025Q2

REPORT INFORMATION
  Report Type: Spontaneous
  Country: US (occurrence: US)
  Receive Date: 20250418
  Receipt Date: 20250418
  Transmission Date: 20250717
  Serious: Yes (Death, Other)
  Sender: JOHNSON AND JOHNSON
  Company Number: US-JNJFOC-20250422500

PATIENT
  Age: 76 Year
  Sex: Female

DRUGS (1)
  1. CARVYKTI [Suspect]
     Active Substance: CILTACABTAGENE AUTOLEUCEL
     Indication: Plasma cell myeloma refractory
     Route: 065
     Dates: start: 202401, end: 202409

REACTIONS (9)
  - Motor dysfunction [Fatal]
  - Neuropathy peripheral [Fatal]
  - Movement disorder [Unknown]
  - Cognitive disorder [Unknown]
  - Cytokine release syndrome [Recovered/Resolved]
  - Immune effector cell-associated neurotoxicity syndrome [Recovered/Resolved]
  - Cranial nerve paralysis [Unknown]
  - Aphasia [Unknown]
  - Confusional state [Unknown]
